FAERS Safety Report 22819919 (Version 7)
Quarter: 2023Q4

REPORT INFORMATION
  Report Type: Spontaneous
  Country: US (occurrence: US)
  Receive Date: 20230814
  Receipt Date: 20231005
  Transmission Date: 20240110
  Serious: No
  Sender: FDA-Public Use
  Company Number: US-PFIZER INC-202300271845

PATIENT
  Age: 9 Year
  Sex: Male
  Weight: 22 kg

DRUGS (2)
  1. GENOTROPIN [Suspect]
     Active Substance: SOMATROPIN
     Indication: Growth hormone deficiency
     Dosage: 0.8 MG, DAILY
  2. GENOTROPIN [Suspect]
     Active Substance: SOMATROPIN
     Dosage: 1 MG, MONTHLY
     Route: 058
     Dates: start: 202306, end: 202307

REACTIONS (4)
  - Drug dose omission by device [Unknown]
  - Device leakage [Unknown]
  - Device breakage [Unknown]
  - Device issue [Unknown]

NARRATIVE: CASE EVENT DATE: 20230701
